FAERS Safety Report 19447891 (Version 1)
Quarter: 2021Q2

REPORT INFORMATION
  Report Type: Spontaneous
  Country: US (occurrence: US)
  Receive Date: 20210621
  Receipt Date: 20210621
  Transmission Date: 20210717
  Serious: No
  Sender: FDA-Public Use
  Company Number: None

PATIENT
  Sex: Female

DRUGS (1)
  1. STELARA [Suspect]
     Active Substance: USTEKINUMAB
     Dosage: ?          OTHER FREQUENCY:EVERY8WEEKS;?
     Route: 058
     Dates: start: 20201219

REACTIONS (3)
  - Hypersensitivity [None]
  - Allergy to chemicals [None]
  - Asthma [None]
